FAERS Safety Report 10690070 (Version 4)
Quarter: 2015Q4

REPORT INFORMATION
  Report Type: Spontaneous
  Country: US (occurrence: US)
  Receive Date: 20150105
  Receipt Date: 20151013
  Transmission Date: 20160304
  Serious: No
  Sender: FDA-Public Use
  Company Number: US-JNJFOC-20141211022

PATIENT
  Age: 21 Year
  Sex: Male

DRUGS (5)
  1. RISPERDAL [Suspect]
     Active Substance: RISPERIDONE
     Indication: ATTENTION DEFICIT/HYPERACTIVITY DISORDER
     Dosage: 0.25-0.5 MG
     Route: 048
     Dates: start: 20110407, end: 20131107
  2. SEROQUEL [Suspect]
     Active Substance: QUETIAPINE FUMARATE
     Indication: IMPULSE-CONTROL DISORDER
     Route: 065
     Dates: start: 20110322
  3. RISPERDAL [Suspect]
     Active Substance: RISPERIDONE
     Indication: IMPULSE-CONTROL DISORDER
     Dosage: 0.25-0.5 MG
     Route: 048
     Dates: start: 20110407, end: 20131107
  4. INVEGA SUSTENNA [Suspect]
     Active Substance: PALIPERIDONE PALMITATE
     Indication: IMPULSE-CONTROL DISORDER
     Route: 030
     Dates: start: 20131114, end: 201406
  5. RISPERDAL [Suspect]
     Active Substance: RISPERIDONE
     Indication: INTERMITTENT EXPLOSIVE DISORDER
     Dosage: 0.25-0.5 MG
     Route: 048
     Dates: start: 20110407, end: 20131107

REACTIONS (6)
  - Abnormal weight gain [Unknown]
  - Product use issue [Unknown]
  - Pain [Unknown]
  - Anger [Unknown]
  - Depression [Unknown]
  - Gynaecomastia [Unknown]

NARRATIVE: CASE EVENT DATE: 201406
